FAERS Safety Report 25685950 (Version 2)
Quarter: 2025Q3

REPORT INFORMATION
  Report Type: Spontaneous
  Country: JP (occurrence: JP)
  Receive Date: 20250815
  Receipt Date: 20250828
  Transmission Date: 20251020
  Serious: Yes (Hospitalization)
  Sender: NOVO NORDISK
  Company Number: JP-NOVOPROD-1497590

PATIENT
  Age: 8 Decade
  Sex: Female

DRUGS (2)
  1. RYBELSUS [Suspect]
     Active Substance: SEMAGLUTIDE
     Dosage: 3 MG, QD (RESTARTED)
     Route: 048
     Dates: start: 2025
  2. RYBELSUS [Suspect]
     Active Substance: SEMAGLUTIDE
     Indication: Type 2 diabetes mellitus
     Dosage: 7 MG, QD
     Route: 048

REACTIONS (1)
  - Injury [Unknown]

NARRATIVE: CASE EVENT DATE: 20250701
